FAERS Safety Report 21754062 (Version 1)
Quarter: 2022Q4

REPORT INFORMATION
  Report Type: Spontaneous
  Country: US (occurrence: US)
  Receive Date: 20221220
  Receipt Date: 20221220
  Transmission Date: 20230113
  Serious: No
  Sender: FDA-Public Use
  Company Number: US-009507513-2212USA006524

PATIENT
  Age: 37 Year
  Sex: Female

DRUGS (3)
  1. TEMODAR [Suspect]
     Active Substance: TEMOZOLOMIDE
     Indication: Metastatic malignant melanoma
  2. VINBLASTINE [Concomitant]
     Active Substance: VINBLASTINE
     Indication: Metastatic malignant melanoma
  3. CISPLATIN [Concomitant]
     Active Substance: CISPLATIN
     Indication: Metastatic malignant melanoma

REACTIONS (1)
  - Product use in unapproved indication [Unknown]
